FAERS Safety Report 21454709 (Version 2)
Quarter: 2023Q1

REPORT INFORMATION
  Report Type: Report from Study
  Country: US (occurrence: US)
  Receive Date: 20221013
  Receipt Date: 20230128
  Transmission Date: 20230418
  Serious: No
  Sender: FDA-Public Use
  Company Number: US-ABBVIE-4141784

PATIENT
  Sex: Male
  Weight: 100 kg

DRUGS (4)
  1. RINVOQ [Suspect]
     Active Substance: UPADACITINIB
     Indication: Rheumatoid arthritis
     Route: 048
  2. Quinapril 40 mg [Concomitant]
     Indication: Product used for unknown indication
  3. Methotrexate 4 mg [Concomitant]
     Indication: Product used for unknown indication
  4. Folic acid 1 mg [Concomitant]
     Indication: Product used for unknown indication

REACTIONS (1)
  - Hyperhidrosis [Unknown]
